FAERS Safety Report 11830062 (Version 1)
Quarter: 2015Q4

REPORT INFORMATION
  Report Type: Spontaneous
  Country: PT (occurrence: PT)
  Receive Date: 20151213
  Receipt Date: 20151213
  Transmission Date: 20160305
  Serious: Yes (Other)
  Sender: FDA-Public Use
  Company Number: PT-ROCHE-1675344

PATIENT
  Age: 7 Year
  Sex: Male

DRUGS (2)
  1. VANCOMYCIN [Suspect]
     Active Substance: VANCOMYCIN
     Indication: BRAIN ABSCESS
     Route: 065
  2. CEFTRIAXONE. [Suspect]
     Active Substance: CEFTRIAXONE
     Indication: MASTOIDITIS
     Route: 065

REACTIONS (2)
  - Off label use [Unknown]
  - Toxic skin eruption [Recovered/Resolved]
